FAERS Safety Report 4324561-6 (Version None)
Quarter: 2004Q1

REPORT INFORMATION
  Report Type: 
  Country: None (occurrence: None)
  Receive Date: 20040323
  Receipt Date: 20040316
  Transmission Date: 20041129
  Serious: Yes (Hospitalization)
  Sender: FDA-Public Use
  Company Number: 2004198587US

PATIENT
  Age: 64 Year
  Sex: Female
  Weight: 75.7 kg

DRUGS (13)
  1. CELECOXIB VS PLACEBO (CODE NOT BROKEN) (CELECOXIB VS PLACEBO) CAPSULE [Suspect]
     Indication: COLON CANCER METASTATIC
     Dosage: 400 MG, BID, ORAL
     Route: 048
     Dates: start: 20031219, end: 20040203
  2. CAMPTOSAR [Suspect]
     Indication: COLON CANCER METASTATIC
     Dosage: 480 MG, EVERY 3 WEEKS, IV; 430 MG, EVERY 3 WEEKS, IV; 1500 MG, BID, ORAL
     Route: 042
     Dates: start: 20040130, end: 20040130
  3. CAMPTOSAR [Suspect]
     Indication: COLON CANCER METASTATIC
     Dosage: 480 MG, EVERY 3 WEEKS, IV; 430 MG, EVERY 3 WEEKS, IV; 1500 MG, BID, ORAL
     Route: 042
     Dates: start: 20040130, end: 20040203
  4. CAMPTOSAR [Suspect]
     Indication: COLON CANCER METASTATIC
     Dosage: 480 MG, EVERY 3 WEEKS, IV; 430 MG, EVERY 3 WEEKS, IV; 1500 MG, BID, ORAL
     Route: 042
     Dates: start: 20031219
  5. COMPARATOR-CAPECITABINE(CAPECITABINE, CAPECITABINE) TABLET [Suspect]
     Indication: COLON CANCER METASTATIC
     Dosage: 2 G, BID, ORAL
     Route: 048
     Dates: start: 20031219
  6. LOMOTIL [Concomitant]
  7. BENTYL [Concomitant]
  8. ATIVAN [Concomitant]
  9. GLUCOTROL [Concomitant]
  10. ASACOL [Concomitant]
  11. ZOFRAN [Concomitant]
  12. DECADRON [Concomitant]
  13. ATRPOPINE (ATROPPINE) [Concomitant]

REACTIONS (5)
  - ABDOMINAL PAIN [None]
  - ASTHENIA [None]
  - DEHYDRATION [None]
  - DIARRHOEA [None]
  - PULMONARY EMBOLISM [None]
